FAERS Safety Report 5368294-6 (Version None)
Quarter: 2007Q2

REPORT INFORMATION
  Report Type: 
  Country: None (occurrence: None)
  Receive Date: 20070625
  Receipt Date: 20070611
  Transmission Date: 20071010
  Serious: Yes (Hospitalization, Other)
  Sender: FDA-Public Use
  Company Number: GR-NOVOPROD-263285

PATIENT
  Sex: Female
  Weight: 77 kg

DRUGS (1)
  1. NOVOLOG MIX 70/30 [Suspect]
     Indication: DRUG USE FOR UNKNOWN INDICATION
     Route: 058
     Dates: start: 20060714

REACTIONS (3)
  - PREGNANCY [None]
  - PREMATURE BABY [None]
  - VAGINAL HAEMORRHAGE [None]
